FAERS Safety Report 5920290-3 (Version None)
Quarter: 2008Q4

REPORT INFORMATION
  Report Type: 
  Country: None (occurrence: None)
  Receive Date: 20081016
  Receipt Date: 20081008
  Transmission Date: 20090506
  Serious: Yes (Other)
  Sender: FDA-Public Use
  Company Number: US-BAYER-200835349NA

PATIENT
  Age: 25 Year
  Sex: Female

DRUGS (1)
  1. MIRENA [Suspect]
     Indication: DRUG USE FOR UNKNOWN INDICATION
     Route: 015
     Dates: start: 20080813, end: 20080923

REACTIONS (5)
  - PELVIC INFLAMMATORY DISEASE [None]
  - PELVIC PAIN [None]
  - TRICHOMONIASIS [None]
  - VAGINAL DISCHARGE [None]
  - VAGINAL ODOUR [None]
